FAERS Safety Report 7741571-7 (Version None)
Quarter: 2011Q3

REPORT INFORMATION
  Report Type: 
  Country: None (occurrence: None)
  Receive Date: 20110909
  Receipt Date: 20110905
  Transmission Date: 20111222
  Serious: Yes (Death)
  Sender: FDA-Public Use
  Company Number: RO-ASTRAZENECA-2011SE53403

PATIENT
  Age: 6 Year
  Sex: Female

DRUGS (3)
  1. MEROPENEM [Suspect]
     Indication: SEPSIS
     Route: 042
     Dates: start: 20110816, end: 20110824
  2. VANCOMICINA [Concomitant]
     Indication: SEPSIS
     Route: 042
     Dates: start: 20110816
  3. GENTAMICIN [Concomitant]
     Indication: SEPSIS
     Route: 042
     Dates: start: 20110814

REACTIONS (1)
  - DEATH [None]
